FAERS Safety Report 8054948-X (Version None)
Quarter: 2012Q1

REPORT INFORMATION
  Report Type: 
  Country: None (occurrence: None)
  Receive Date: 20120119
  Receipt Date: 20120109
  Transmission Date: 20120608
  Serious: Yes (Hospitalization, Other)
  Sender: FDA-Public Use
  Company Number: CA-ELI_LILLY_AND_COMPANY-CA201201002310

PATIENT
  Age: 30 Year
  Sex: Male

DRUGS (3)
  1. VALCYTE [Concomitant]
     Dosage: 900 MG, QD
     Route: 048
  2. CYMBALTA [Suspect]
     Dosage: 60 MG, QD
     Route: 048
  3. ATIVAN [Concomitant]

REACTIONS (9)
  - DEPRESSION [None]
  - FATIGUE [None]
  - CONDITION AGGRAVATED [None]
  - PSYCHOTIC DISORDER [None]
  - SUICIDAL IDEATION [None]
  - ANXIETY [None]
  - CONVULSION [None]
  - SCHIZOPHRENIA [None]
  - INSOMNIA [None]
